FAERS Safety Report 4293154-1 (Version None)
Quarter: 2004Q1

REPORT INFORMATION
  Report Type: 
  Country: None (occurrence: None)
  Receive Date: 20040212
  Receipt Date: 20030613
  Transmission Date: 20041129
  Serious: No
  Sender: FDA-Public Use
  Company Number: US-GLAXOSMITHKLINE-A0412458A

PATIENT
  Age: 36 Year
  Sex: Female

DRUGS (1)
  1. PAXIL [Suspect]
     Indication: DEPRESSION
     Route: 048
     Dates: start: 20030106

REACTIONS (7)
  - ANORGASMIA [None]
  - DEPRESSION [None]
  - DIZZINESS [None]
  - MALAISE [None]
  - NAUSEA [None]
  - ORGASM ABNORMAL [None]
  - VISION BLURRED [None]
